FAERS Safety Report 9425918 (Version 1)
Quarter: 2013Q3

REPORT INFORMATION
  Report Type: Spontaneous
  Country: US (occurrence: US)
  Receive Date: 20130729
  Receipt Date: 20130729
  Transmission Date: 20140515
  Serious: No
  Sender: FDA-Public Use
  Company Number: US-009507513-1307USA008430

PATIENT
  Age: 45 Year
  Sex: Female

DRUGS (1)
  1. SAPHRIS [Suspect]
     Dosage: UNK

REACTIONS (1)
  - Insomnia [Unknown]
